FAERS Safety Report 7874989-2 (Version None)
Quarter: 2011Q4

REPORT INFORMATION
  Report Type: 
  Country: None (occurrence: None)
  Receive Date: 20111031
  Receipt Date: 20100511
  Transmission Date: 20120403
  Serious: No
  Sender: FDA-Public Use
  Company Number: US-BAYER-201022306NA

PATIENT
  Age: 49 Year
  Sex: Male

DRUGS (1)
  1. LEVITRA [Suspect]
     Dosage: 2.5 MG, PRN

REACTIONS (4)
  - HEADACHE [None]
  - FLUSHING [None]
  - PALPITATIONS [None]
  - NASAL CONGESTION [None]
